FAERS Safety Report 5407213-0 (Version None)
Quarter: 2007Q3

REPORT INFORMATION
  Report Type: 
  Country: None (occurrence: None)
  Receive Date: 20070807
  Receipt Date: 20070731
  Transmission Date: 20080115
  Serious: Yes (Hospitalization)
  Sender: FDA-Public Use
  Company Number: A0667378A

PATIENT
  Age: 31 Year
  Sex: Female

DRUGS (2)
  1. REQUIP [Suspect]
     Dosage: 12MG PER DAY
     Route: 048
     Dates: start: 20050101, end: 20061124
  2. TOPAMAX [Concomitant]

REACTIONS (14)
  - ABORTION SPONTANEOUS [None]
  - AMNESIA [None]
  - ANXIETY [None]
  - CHEST PAIN [None]
  - COUGH [None]
  - DISTURBANCE IN ATTENTION [None]
  - EATING DISORDER [None]
  - HAEMATOCHEZIA [None]
  - INSOMNIA [None]
  - MENTAL DISORDER [None]
  - OBSESSIVE-COMPULSIVE DISORDER [None]
  - OESOPHAGEAL OPERATION [None]
  - PARANOIA [None]
  - VOMITING [None]
